FAERS Safety Report 5108175-6 (Version None)
Quarter: 2006Q3

REPORT INFORMATION
  Report Type: 
  Country: None (occurrence: None)
  Receive Date: 20060919
  Receipt Date: 20060620
  Transmission Date: 20061208
  Serious: Yes (Hospitalization)
  Sender: FDA-Public Use
  Company Number: US-ROCHE-452689

PATIENT
  Age: 73 Year
  Sex: Male

DRUGS (9)
  1. XELODA [Suspect]
     Indication: COLON CANCER
     Route: 048
     Dates: start: 20060315, end: 20060618
  2. ERBITUX [Concomitant]
     Dosage: ON 9 JUNE 2006 THE PATIENT RECEIVED  500 MG AND AGAIN ON 16 JUNE 2006 500 MG.
     Dates: start: 20060602
  3. COUMADIN [Concomitant]
  4. TOPRAL [Concomitant]
  5. VICODIN [Concomitant]
     Dosage: TAKEN PRN
  6. PREVACID [Concomitant]
  7. MARINOL [Concomitant]
  8. MEGESTROL [Concomitant]
  9. FENTANYL [Concomitant]

REACTIONS (4)
  - APHASIA [None]
  - CEREBRAL INFARCTION [None]
  - EMBOLIC STROKE [None]
  - HEMIPARESIS [None]
